FAERS Safety Report 8536245-9 (Version None)
Quarter: 2012Q3

REPORT INFORMATION
  Report Type: 
  Country: None (occurrence: None)
  Receive Date: 20120725
  Receipt Date: 20120720
  Transmission Date: 20120928
  Serious: Yes (Other)
  Sender: FDA-Public Use
  Company Number: GB-PFIZER INC-2012162254

PATIENT
  Age: 68 Year
  Sex: Male

DRUGS (6)
  1. SUTENT [Suspect]
     Indication: RENAL CANCER METASTATIC
     Dosage: 50 MG, 1X/DAY
     Route: 048
     Dates: start: 20120517
  2. OMEPRAZOLE [Concomitant]
     Dosage: 20 MG, UNK
     Route: 048
  3. LISINOPRIL [Concomitant]
     Dosage: 5 MG, UNK
     Route: 048
  4. TAMSULOSIN [Concomitant]
     Dosage: 400 MG, UNK
     Route: 048
  5. PENTOSAN POLYSULFATE [Concomitant]
     Dosage: 8 G + DS
     Route: 048
  6. LEVOTHYROXINE SODIUM [Concomitant]
     Dosage: 25 MG, UNK
     Route: 048

REACTIONS (1)
  - ENTEROCOLITIS HAEMORRHAGIC [None]
